FAERS Safety Report 21556435 (Version 1)
Quarter: 2022Q4

REPORT INFORMATION
  Report Type: Report from Study
  Country: DE (occurrence: DE)
  Receive Date: 20221104
  Receipt Date: 20221104
  Transmission Date: 20230112
  Serious: Yes (Hospitalization)
  Sender: FDA-Public Use
  Company Number: DE-ELI_LILLY_AND_COMPANY-DE202209012298

PATIENT
  Sex: Female

DRUGS (1)
  1. TERIPARATIDE [Suspect]
     Active Substance: TERIPARATIDE
     Indication: Osteoporosis
     Dosage: UNK, DAILY
     Route: 058
     Dates: start: 20220816

REACTIONS (7)
  - Fall [Unknown]
  - Pneumonitis [Unknown]
  - Sternal fracture [Unknown]
  - Rib fracture [Unknown]
  - Spinal fracture [Unknown]
  - Intervertebral disc disorder [Unknown]
  - Syncope [Unknown]

NARRATIVE: CASE EVENT DATE: 20220901
